FAERS Safety Report 7008619-9 (Version None)
Quarter: 2010Q3

REPORT INFORMATION
  Report Type: 
  Country: None (occurrence: None)
  Receive Date: 20100922
  Receipt Date: 20100909
  Transmission Date: 20110219
  Serious: Yes (Other)
  Sender: FDA-Public Use
  Company Number: JP-ELI_LILLY_AND_COMPANY-JP201009002313

PATIENT
  Age: 85 Year
  Sex: Female

DRUGS (3)
  1. OLANZAPINE [Suspect]
     Dosage: 10 MG, DAILY (1/D)
     Route: 048
     Dates: end: 20100901
  2. VALPROIC ACID [Concomitant]
     Route: 048
     Dates: end: 20100901
  3. VALPROIC ACID [Concomitant]
     Route: 048
     Dates: start: 20100901

REACTIONS (2)
  - OFF LABEL USE [None]
  - PLATELET COUNT DECREASED [None]
